FAERS Safety Report 25900351 (Version 1)
Quarter: 2025Q4

REPORT INFORMATION
  Report Type: Spontaneous
  Country: US (occurrence: US)
  Receive Date: 20251009
  Receipt Date: 20251009
  Transmission Date: 20260117
  Serious: Yes (Hospitalization, Other)
  Sender: ALEMBIC
  Company Number: US-ALEMBIC PHARMACUETICALS LIMITED-2025SCAL001277

PATIENT

DRUGS (2)
  1. LITHIUM CARBONATE [Suspect]
     Active Substance: LITHIUM CARBONATE
     Indication: Bipolar disorder
     Dosage: UNK
     Route: 065
     Dates: start: 2010
  2. LITHIUM CARBONATE [Suspect]
     Active Substance: LITHIUM CARBONATE
     Dosage: 300 MILLIGRAM, BID
     Route: 065

REACTIONS (12)
  - Catatonia [Recovered/Resolved]
  - Moaning [Unknown]
  - Unresponsive to stimuli [Recovering/Resolving]
  - Paratonia [Unknown]
  - Waxy flexibility [Recovering/Resolving]
  - Primitive reflex test [Unknown]
  - Drug level increased [Unknown]
  - Fall [Unknown]
  - Hyperparathyroidism [Unknown]
  - Muscular weakness [Unknown]
  - Blood creatinine increased [Unknown]
  - Hypercalcaemia [Recovered/Resolved]

NARRATIVE: CASE EVENT DATE: 20200101
